FAERS Safety Report 11199921 (Version 1)
Quarter: 2015Q2

REPORT INFORMATION
  Report Type: Spontaneous
  Country: US (occurrence: None)
  Receive Date: 20150617
  Receipt Date: 20150617
  Transmission Date: 20150821
  Serious: No
  Sender: FDA-Public Use
  Company Number: None

PATIENT
  Age: 72 Year
  Sex: Male

DRUGS (10)
  1. TAMSULOSIN [Concomitant]
     Active Substance: TAMSULOSIN
  2. CEPHALEXIN. [Concomitant]
     Active Substance: CEPHALEXIN
  3. CYCLOPHOSPHAMIDE. [Concomitant]
     Active Substance: CYCLOPHOSPHAMIDE
  4. PREDNISONE. [Concomitant]
     Active Substance: PREDNISONE
  5. SOLU-MEDROL [Suspect]
     Active Substance: METHYLPREDNISOLONE SODIUM SUCCINATE
     Indication: NEOPLASM MALIGNANT
     Dates: start: 20150123
  6. ONDANSETRON [Concomitant]
     Active Substance: ONDANSETRON
  7. ALENDRONATE [Concomitant]
     Active Substance: ALENDRONATE SODIUM
  8. MISOPROSTOL. [Concomitant]
     Active Substance: MISOPROSTOL
  9. CALCIUM [Concomitant]
     Active Substance: CALCIUM
  10. MESNA. [Suspect]
     Active Substance: MESNA
     Indication: NEOPLASM MALIGNANT
     Route: 042
     Dates: start: 20150123

REACTIONS (3)
  - Feeling hot [None]
  - Abdominal distension [None]
  - Nausea [None]
